FAERS Safety Report 5571896-5 (Version None)
Quarter: 2007Q4

REPORT INFORMATION
  Report Type: 
  Country: None (occurrence: None)
  Receive Date: 20071221
  Receipt Date: 20071211
  Transmission Date: 20080405
  Serious: Yes (Hospitalization)
  Sender: FDA-Public Use
  Company Number: GB-ABBOTT-07P-167-0362311-00

PATIENT
  Sex: Female
  Weight: 70 kg

DRUGS (5)
  1. HUMIRA [Suspect]
     Indication: ARTHRITIS BACTERIAL
     Route: 058
     Dates: start: 20061003, end: 20061216
  2. ACETAMINOPHEN W/ PROPOXYPHENE HCL [Concomitant]
     Indication: ANALGESIA
     Route: 048
     Dates: start: 20061001
  3. ATENOLOL [Concomitant]
     Indication: HYPERTENSION
     Route: 048
     Dates: start: 20061001
  4. METHOTREXATE [Concomitant]
     Indication: PSORIATIC ARTHROPATHY
     Dates: start: 20061229
  5. FOLIC ACID [Concomitant]
     Indication: DRUG USE FOR UNKNOWN INDICATION

REACTIONS (3)
  - ARTHRITIS BACTERIAL [None]
  - ERYTHEMA [None]
  - JOINT RANGE OF MOTION DECREASED [None]
